FAERS Safety Report 16631077 (Version 1)
Quarter: 2019Q3

REPORT INFORMATION
  Report Type: Other
  Country: CH (occurrence: CH)
  Receive Date: 20190725
  Receipt Date: 20190725
  Transmission Date: 20191004
  Serious: Yes (Hospitalization)
  Sender: FDA-Public Use
  Company Number: CH-CHANGZHOU PHARMACEUTICAL FACTORY-2071293

PATIENT
  Age: 85 Year
  Sex: Male

DRUGS (8)
  1. SACUBITRIL/VALSARTAN 200 MG (97/103 MG) [Suspect]
     Active Substance: SACUBITRIL\VALSARTAN
     Route: 065
  2. ROSUVASTATIN CALCIUM. [Suspect]
     Active Substance: ROSUVASTATIN CALCIUM
     Route: 065
  3. SITAGLIPTIN [Concomitant]
     Active Substance: SITAGLIPTIN
     Route: 065
  4. METOPROLOL. [Concomitant]
     Active Substance: METOPROLOL
     Route: 065
  5. ASPIRIN. [Concomitant]
     Active Substance: ASPIRIN
     Route: 065
  6. TORSEMIDE. [Concomitant]
     Active Substance: TORSEMIDE
     Route: 065
  7. AMIODARONE HYDROCHLORIDE. [Suspect]
     Active Substance: AMIODARONE HYDROCHLORIDE
     Route: 065
  8. SPIRONOLACTONE. [Concomitant]
     Active Substance: SPIRONOLACTONE
     Route: 065

REACTIONS (7)
  - Low cardiac output syndrome [Unknown]
  - Multiple organ dysfunction syndrome [Unknown]
  - Liver injury [Unknown]
  - Drug interaction [Unknown]
  - Drug level increased [Unknown]
  - Acute kidney injury [Unknown]
  - Rhabdomyolysis [Unknown]
